FAERS Safety Report 10039254 (Version 2)
Quarter: 2014Q1

REPORT INFORMATION
  Report Type: Report from Study
  Country: DE (occurrence: DE)
  Receive Date: 20140326
  Receipt Date: 20140326
  Transmission Date: 20141002
  Serious: Yes (Hospitalization)
  Sender: FDA-Public Use
  Company Number: PHHY2014DE029726

PATIENT
  Sex: Female

DRUGS (1)
  1. GILENYA [Suspect]
     Indication: MULTIPLE SCLEROSIS
     Dosage: 0.5 MG, DAILY
     Route: 048
     Dates: start: 20130806

REACTIONS (4)
  - Local swelling [Recovering/Resolving]
  - Paraesthesia [Recovering/Resolving]
  - Feeling hot [Recovering/Resolving]
  - Feeling cold [Recovering/Resolving]
